FAERS Safety Report 8830258 (Version 1)
Quarter: 2012Q4

REPORT INFORMATION
  Report Type: 
  Country: SE (occurrence: SE)
  Receive Date: 20121009
  Receipt Date: 20121009
  Transmission Date: 20130627
  Serious: Yes (Other)
  Sender: FDA-Public Use
  Company Number: SE-JNJFOC-20120913307

PATIENT
  Sex: Male

DRUGS (9)
  1. NICORETTE [Suspect]
     Route: 062
  2. NICORETTE [Suspect]
     Indication: SMOKING CESSATION THERAPY
     Route: 062
     Dates: start: 201209
  3. TROMBYL [Concomitant]
     Route: 065
  4. PERSANTIN [Concomitant]
     Indication: TRANSIENT ISCHAEMIC ATTACK
     Route: 065
  5. LANTUS [Concomitant]
     Indication: DIABETES MELLITUS
     Route: 065
  6. FURIX [Concomitant]
     Route: 065
  7. ATACAND [Concomitant]
     Route: 065
  8. EZETROL [Concomitant]
     Route: 065
  9. APIDRA [Concomitant]
     Dosage: 4-12 units depending on sugar levels
     Route: 065

REACTIONS (2)
  - Paralysis [Recovering/Resolving]
  - Overdose [Unknown]
